FAERS Safety Report 11895736 (Version 4)
Quarter: 2016Q1

REPORT INFORMATION
  Report Type: Report from Study
  Country: US (occurrence: US)
  Receive Date: 20160107
  Receipt Date: 20160212
  Transmission Date: 20160526
  Serious: No
  Sender: FDA-Public Use
  Company Number: PHEH2016US000541

PATIENT
  Sex: Male

DRUGS (5)
  1. ILARIS [Suspect]
     Active Substance: CANAKINUMAB
     Indication: PFAPA SYNDROME
  2. ILARIS [Suspect]
     Active Substance: CANAKINUMAB
     Indication: PRODUCT USED FOR UNKNOWN INDICATION
     Dosage: 150 MG, EVERY 8 WEEKS
     Route: 058
  3. MULTI VITAMIN [Concomitant]
     Active Substance: VITAMINS
     Indication: PRODUCT USED FOR UNKNOWN INDICATION
     Dosage: UNK
     Route: 065
  4. COLCHICINE. [Suspect]
     Active Substance: COLCHICINE
     Indication: PRODUCT USED FOR UNKNOWN INDICATION
     Dosage: UNK
     Route: 065
  5. CALCIUM [Concomitant]
     Active Substance: CALCIUM
     Indication: PRODUCT USED FOR UNKNOWN INDICATION
     Dosage: UNK
     Route: 065

REACTIONS (16)
  - Pyrexia [Unknown]
  - Feeling abnormal [Recovering/Resolving]
  - Pain in extremity [Recovering/Resolving]
  - Body temperature decreased [Unknown]
  - Stomatitis [Unknown]
  - Oropharyngeal pain [Unknown]
  - Influenza [Unknown]
  - Arthralgia [Unknown]
  - Fatigue [Unknown]
  - Back pain [Recovering/Resolving]
  - Headache [Unknown]
  - Condition aggravated [Unknown]
  - Muscle spasms [Unknown]
  - Drug ineffective [Unknown]
  - Back pain [Unknown]
  - Off label use [Unknown]
